FAERS Safety Report 10029195 (Version 3)
Quarter: 2014Q2

REPORT INFORMATION
  Report Type: Spontaneous
  Country: FR (occurrence: FR)
  Receive Date: 20140321
  Receipt Date: 20140522
  Transmission Date: 20141212
  Serious: Yes (Life-Threatening, Hospitalization, Other)
  Sender: FDA-Public Use
  Company Number: FR-ASTRAZENECA-2014SE19205

PATIENT
  Age: 16284 Day
  Sex: Male

DRUGS (4)
  1. XEROQUEL [Suspect]
     Indication: DEPRESSIVE SYMPTOM
     Route: 048
  2. XEROQUEL [Suspect]
     Indication: DEPRESSIVE SYMPTOM
     Dosage: ONE BOX
     Route: 048
  3. LOXAPAC [Suspect]
     Indication: DEPRESSIVE SYMPTOM
     Route: 048
  4. SEROPLEX [Suspect]
     Indication: DEPRESSIVE SYMPTOM
     Route: 048

REACTIONS (8)
  - Toxicity to various agents [Unknown]
  - Renal tubular necrosis [Recovered/Resolved]
  - Disorientation [Unknown]
  - Epistaxis [Unknown]
  - Vomiting [Unknown]
  - Neuroleptic malignant syndrome [Recovered/Resolved]
  - Sinus tachycardia [Unknown]
  - Thrombosis [Unknown]
